FAERS Safety Report 19514647 (Version 3)
Quarter: 2021Q3

REPORT INFORMATION
  Report Type: Spontaneous
  Country: US (occurrence: US)
  Receive Date: 20210710
  Receipt Date: 20210726
  Transmission Date: 20211014
  Serious: No
  Sender: FDA-Public Use
  Company Number: NVSC2021US152857

PATIENT
  Sex: Female

DRUGS (1)
  1. PAZEO [Suspect]
     Active Substance: OLOPATADINE HYDROCHLORIDE
     Indication: PRODUCT USED FOR UNKNOWN INDICATION
     Dosage: 2.5 ML
     Route: 065

REACTIONS (1)
  - Eye irritation [Recovered/Resolved]
